FAERS Safety Report 6391426-8 (Version None)
Quarter: 2009Q4

REPORT INFORMATION
  Report Type: 
  Country: None (occurrence: None)
  Receive Date: 20091006
  Receipt Date: 20091006
  Transmission Date: 20100525
  Serious: No
  Sender: FDA-Public Use
  Company Number: None

PATIENT
  Sex: Male
  Weight: 3.06 kg

DRUGS (1)
  1. ERYTHROMYCIN OPTHALMIC OINTMENT 0.5% BAUSCH + LOMB [Suspect]
     Indication: OPHTHALMIA NEONATORUM
     Dosage: RIBBON TO EACH EYE OPHTHALMIC
     Route: 047
     Dates: start: 20090929, end: 20090929

REACTIONS (1)
  - RASH PUSTULAR [None]
